FAERS Safety Report 21481748 (Version 1)
Quarter: 2022Q4

REPORT INFORMATION
  Report Type: Spontaneous
  Country: US (occurrence: US)
  Receive Date: 20221020
  Receipt Date: 20221020
  Transmission Date: 20230113
  Serious: Yes (Other)
  Sender: FDA-Public Use
  Company Number: US-ALEMBIC PHARMACUETICALS LIMITED-2022SCAL000444

PATIENT

DRUGS (5)
  1. LITHIUM CARBONATE [Suspect]
     Active Substance: LITHIUM CARBONATE
     Indication: Bipolar I disorder
     Dosage: 1200 MILLIGRAM, QD
     Route: 065
  2. CARIPRAZINE [Suspect]
     Active Substance: CARIPRAZINE
     Indication: Bipolar I disorder
     Dosage: 4.5 MILLIGRAM, QD
     Route: 065
  3. LEVOTHYROXINE [Concomitant]
     Active Substance: LEVOTHYROXINE
     Indication: Hypothyroidism
     Dosage: 150 ?G DAILY
     Route: 065
  4. OMEPRAZOLE [Concomitant]
     Active Substance: OMEPRAZOLE
     Indication: Gastrooesophageal reflux disease
     Dosage: 20 MILLIGRAM, OD
     Route: 065
  5. QUETIAPINE [Concomitant]
     Active Substance: QUETIAPINE
     Indication: Insomnia
     Dosage: 50 MG AT BEDTIME
     Route: 065

REACTIONS (8)
  - Suicide attempt [Recovered/Resolved]
  - Anterograde amnesia [Recovered/Resolved]
  - Parkinsonian gait [Recovered/Resolved]
  - Reduced facial expression [Recovered/Resolved]
  - Treatment noncompliance [Unknown]
  - Confusional state [Recovered/Resolved]
  - Disorientation [Recovered/Resolved]
  - Toxicity to various agents [Recovered/Resolved]

NARRATIVE: CASE EVENT DATE: 20221201
